FAERS Safety Report 5804674-X (Version None)
Quarter: 2008Q3

REPORT INFORMATION
  Report Type: 
  Country: None (occurrence: None)
  Receive Date: 20080709
  Receipt Date: 20080702
  Transmission Date: 20090109
  Serious: Yes (Death)
  Sender: FDA-Public Use
  Company Number: FR-BAYER-200821225GPV

PATIENT
  Age: 69 Year
  Sex: Male

DRUGS (3)
  1. CIFLOX [Suspect]
     Indication: DRUG USE FOR UNKNOWN INDICATION
     Route: 065
     Dates: start: 20080519, end: 20080520
  2. CIFLOX [Suspect]
     Route: 065
     Dates: start: 20080519, end: 20080520
  3. CLAMOXYL [Suspect]
     Indication: DRUG USE FOR UNKNOWN INDICATION
     Route: 065
     Dates: start: 20080520, end: 20080523

REACTIONS (1)
  - STATUS EPILEPTICUS [None]
